FAERS Safety Report 14511688 (Version 5)
Quarter: 2018Q2

REPORT INFORMATION
  Report Type: Spontaneous
  Country: CA (occurrence: CA)
  Receive Date: 20180209
  Receipt Date: 20180430
  Transmission Date: 20180711
  Serious: Yes (Other)
  Sender: FDA-Public Use
  Company Number: CA-CELLTRION INC.-2017CA013635

PATIENT

DRUGS (13)
  1. INFLECTRA [Suspect]
     Active Substance: INFLIXIMAB-DYYB
     Dosage: 5 MG/KG (429 MG,AT 0,2,6 WEEKS THEN EVERY8 WEEKS/390MG)
  2. INFLECTRA [Suspect]
     Active Substance: INFLIXIMAB-DYYB
     Dosage: 5 MG/KG (429 MG,AT 0,2,6 WEEKS THEN EVERY8 WEEKS/390MG)
     Dates: start: 20180104, end: 20180104
  3. ELTROXIN [Concomitant]
     Active Substance: LEVOTHYROXINE
     Dosage: 150 ?G, 1X/DAY
     Route: 048
  4. INFLECTRA [Suspect]
     Active Substance: INFLIXIMAB-DYYB
     Indication: CROHN^S DISEASE
     Dosage: 400,MG CYCLIC, 5MG/KG WITH WEIGHT OF 80 MG EVERY 2,6 WEEKS, THEN EVERY 8 WEEKS
     Route: 042
     Dates: start: 20170928
  5. INFLECTRA [Suspect]
     Active Substance: INFLIXIMAB-DYYB
     Dosage: 5 MG/KG, CYCLIC (WITH WEIGHT OF 78 KG AT 0,2,6 WEEKS THEN EVERY 8 WEEKS/390MG)
     Route: 042
     Dates: start: 20171109
  6. ATIVAN [Concomitant]
     Active Substance: LORAZEPAM
     Dosage: 1 MG, DAILY
     Route: 048
  7. PENTASA [Concomitant]
     Active Substance: MESALAMINE
     Dosage: 20 MG, 2X/DAY
     Route: 048
     Dates: start: 201704
  8. HYDROCHLOROTHIAZIDE. [Concomitant]
     Active Substance: HYDROCHLOROTHIAZIDE
     Dosage: 25 MG, UNK
     Route: 048
  9. COVERSYL                           /00790702/ [Concomitant]
     Active Substance: PERINDOPRIL
     Dosage: 8 MG, 1X/DAY
     Route: 048
  10. GLICLAZIDE [Concomitant]
     Active Substance: GLICLAZIDE
     Dosage: 30 MG, UNK
     Route: 048
  11. GLUMETZA [Concomitant]
     Active Substance: METFORMIN HYDROCHLORIDE
     Dosage: 1000 MG, DAILY
     Route: 048
  12. INFLECTRA [Suspect]
     Active Substance: INFLIXIMAB-DYYB
     Dosage: 5 MG/KG, CYCLIC, WITH WEIGHT OF 78 KG AT 0,2,6 WEEKS THEN EVERY 8 WEEKS/390 MG
     Route: 042
     Dates: start: 20171012
  13. AMLODIPINE [Concomitant]
     Active Substance: AMLODIPINE BESYLATE
     Dosage: 10 MG, 1X/DAY
     Route: 048

REACTIONS (18)
  - Cataract [Unknown]
  - Nausea [Not Recovered/Not Resolved]
  - Rash macular [Not Recovered/Not Resolved]
  - Blood pressure fluctuation [Unknown]
  - Abdominal distension [Unknown]
  - Peripheral swelling [Recovered/Resolved]
  - Drug ineffective [Not Recovered/Not Resolved]
  - Gastrointestinal disorder [Unknown]
  - Eczema [Not Recovered/Not Resolved]
  - Nasopharyngitis [Unknown]
  - Oral candidiasis [Recovering/Resolving]
  - Skin fissures [Unknown]
  - Skin lesion [Unknown]
  - Weight increased [Unknown]
  - Endometrial thickening [Not Recovered/Not Resolved]
  - Psoriasis [Unknown]
  - Arthropod bite [Unknown]
  - Arthralgia [Recovering/Resolving]

NARRATIVE: CASE EVENT DATE: 20170928
